FAERS Safety Report 7868908-2 (Version None)
Quarter: 2011Q4

REPORT INFORMATION
  Report Type: 
  Country: None (occurrence: None)
  Receive Date: 20111028
  Receipt Date: 20101221
  Transmission Date: 20120403
  Serious: No
  Sender: FDA-Public Use
  Company Number: US-AMGEN-USASP2010010541

PATIENT
  Age: 56 Year
  Sex: Female

DRUGS (3)
  1. MOTRIN [Concomitant]
     Dosage: 400 MG, UNK
  2. IBUPROFEN (ADVIL) [Concomitant]
     Dosage: 200 MG, UNK
  3. ENBREL [Suspect]
     Indication: PRODUCT USED FOR UNKNOWN INDICATION
     Dosage: 50 MG, QWK

REACTIONS (1)
  - URTICARIA [None]
